FAERS Safety Report 10641061 (Version 1)
Quarter: 2014Q4

REPORT INFORMATION
  Report Type: Report from Study
  Country: CA (occurrence: CA)
  Receive Date: 20141209
  Receipt Date: 20141209
  Transmission Date: 20150529
  Serious: Yes (Other)
  Sender: FDA-Public Use
  Company Number: CA-SA-2014SA166192

PATIENT
  Age: 27 Year
  Sex: Female

DRUGS (12)
  1. TRASTUZUMAB [Suspect]
     Active Substance: TRASTUZUMAB
     Route: 065
  2. TRASTUZUMAB EMTANSINE [Suspect]
     Active Substance: ADO-TRASTUZUMAB EMTANSINE
     Dosage: 100MG AND 160MG SINGLE-USE VIALS?POWDER FOR SOLUTION INTRAVENOUS
     Route: 042
  3. TAXOTERE [Suspect]
     Active Substance: DOCETAXEL
     Dosage: FORM-SOLUTION INTRAVENOUS
  4. FRAGMIN [Suspect]
     Active Substance: DALTEPARIN SODIUM
     Dosage: FORM-SOLUTION INTRAVENOUS
     Route: 065
  5. XELODA [Suspect]
     Active Substance: CAPECITABINE
     Route: 065
  6. VINORELBINE [Suspect]
     Active Substance: VINORELBINE\VINORELBINE TARTRATE
     Route: 065
  7. DOXORUBICIN [Concomitant]
     Active Substance: DOXORUBICIN
  8. TAXOL [Suspect]
     Active Substance: PACLITAXEL
     Dosage: SOLUTION INTRAVENOUS
     Route: 065
  9. TRASTUZUMAB [Suspect]
     Active Substance: TRASTUZUMAB
     Route: 065
  10. TRASTUZUMAB EMTANSINE [Suspect]
     Active Substance: ADO-TRASTUZUMAB EMTANSINE
     Dosage: 100MG AND 160MG SINGLE-USE VIALS
     Route: 042
  11. PERTUZUMAB [Suspect]
     Active Substance: PERTUZUMAB
     Route: 065
  12. VAGIFEM [Concomitant]
     Active Substance: ESTRADIOL

REACTIONS (8)
  - Malignant neoplasm progression [Recovered/Resolved]
  - Diplopia [Recovered/Resolved]
  - Hypothalamo-pituitary disorder [Recovered/Resolved]
  - Contusion [Recovered/Resolved]
  - Thrombosis [Recovered/Resolved]
  - Pituitary tumour [Recovered/Resolved]
  - Vessel puncture site bruise [Recovered/Resolved]
  - Nasopharyngitis [Recovered/Resolved]
